FAERS Safety Report 17976357 (Version 1)
Quarter: 2020Q3

REPORT INFORMATION
  Report Type: Spontaneous
  Country: GB (occurrence: GB)
  Receive Date: 20200703
  Receipt Date: 20200703
  Transmission Date: 20201103
  Serious: Yes (Other)
  Sender: FDA-Public Use
  Company Number: GB-009507513-2006GBR010988

PATIENT
  Sex: Male

DRUGS (1)
  1. JANUMET [Suspect]
     Active Substance: METFORMIN HYDROCHLORIDE\SITAGLIPTIN PHOSPHATE
     Dosage: 50/1000 MG DOSE
     Route: 048

REACTIONS (4)
  - Circumstance or information capable of leading to medication error [Unknown]
  - Wrong technique in product usage process [Unknown]
  - Dysphagia [Unknown]
  - Cerebrovascular accident [Unknown]
